FAERS Safety Report 12478301 (Version 5)
Quarter: 2017Q2

REPORT INFORMATION
  Report Type: Spontaneous
  Country: US (occurrence: US)
  Receive Date: 20160617
  Receipt Date: 20170406
  Transmission Date: 20170830
  Serious: No
  Sender: FDA-Public Use
  Company Number: US-EMERGENT BIOSOLUTIONS-16BA00051SP

PATIENT
  Age: 30 Year
  Sex: Male
  Weight: 79.5 kg

DRUGS (4)
  1. BAT [Suspect]
     Active Substance: EQUINE BOTULINUM NEUROTOXIN A/B/C/D/E/F/G IMMUNE FAB2
     Indication: BOTULISM
     Dosage: 20100 UNIT, SINGLE
     Route: 042
     Dates: start: 20160608, end: 20160608
  2. FENTANYL. [Concomitant]
     Active Substance: FENTANYL
     Dosage: UNK
     Dates: start: 20160607
  3. VERSED [Concomitant]
     Active Substance: MIDAZOLAM HYDROCHLORIDE
     Dosage: UNK
     Dates: start: 20160608
  4. PROPOFOL. [Concomitant]
     Active Substance: PROPOFOL
     Dosage: UNK
     Dates: start: 20160608

REACTIONS (2)
  - Tachycardia [Unknown]
  - Pyrexia [Recovered/Resolved]

NARRATIVE: CASE EVENT DATE: 20160608
